FAERS Safety Report 19269264 (Version 2)
Quarter: 2021Q2

REPORT INFORMATION
  Report Type: Spontaneous
  Country: JP (occurrence: JP)
  Receive Date: 20210517
  Receipt Date: 20210604
  Transmission Date: 20210717
  Serious: Yes (Other)
  Sender: FDA-Public Use
  Company Number: JP-ELI_LILLY_AND_COMPANY-JP202105003178

PATIENT
  Age: 70 Year

DRUGS (1)
  1. ALIMTA [Suspect]
     Active Substance: PEMETREXED DISODIUM
     Indication: NEOPLASM MALIGNANT
     Route: 041

REACTIONS (3)
  - Dysuria [Not Recovered/Not Resolved]
  - Malignant neoplasm progression [Unknown]
  - Renal disorder [Unknown]
